FAERS Safety Report 20680112 (Version 1)
Quarter: 2022Q2

REPORT INFORMATION
  Report Type: Report from Study
  Country: US (occurrence: US)
  Receive Date: 20220406
  Receipt Date: 20220406
  Transmission Date: 20220721
  Serious: Yes (Hospitalization, Other)
  Sender: FDA-Public Use
  Company Number: US-BAUSCH-BL-2022-008306

PATIENT
  Age: 52 Year
  Sex: Male

DRUGS (10)
  1. XIFAXAN [Suspect]
     Active Substance: RIFAXIMIN
     Indication: Product used for unknown indication
     Route: 048
     Dates: start: 20220302, end: 20220321
  2. PACERONE [Concomitant]
     Active Substance: AMIODARONE HYDROCHLORIDE
     Indication: Product used for unknown indication
     Route: 048
     Dates: start: 20220216
  3. LIPITOR [Concomitant]
     Active Substance: ATORVASTATIN CALCIUM
     Indication: Product used for unknown indication
     Route: 048
  4. VITAMIN D3 [Concomitant]
     Active Substance: CHOLECALCIFEROL
     Indication: Product used for unknown indication
     Dosage: TAKEN 2000 UNITS BY MOUTH DAILY. 50 MCG
     Route: 048
  5. NEURONTIN [Concomitant]
     Active Substance: GABAPENTIN
     Indication: Product used for unknown indication
     Dosage: IN MORNING, AFTERNOON AND BEDTIME
     Route: 048
  6. MICROZIDE [Concomitant]
     Active Substance: HYDROCHLOROTHIAZIDE
     Indication: Product used for unknown indication
     Route: 048
  7. DUPHALAC [Concomitant]
     Active Substance: LACTULOSE
     Indication: Product used for unknown indication
     Dosage: 20 GRAM/30 ML, PRESCRIBED 45 ML BY MOUTH 2 TIMES DAILY
     Route: 048
     Dates: start: 20220216
  8. COZAAR [Concomitant]
     Active Substance: LOSARTAN POTASSIUM
     Indication: Product used for unknown indication
     Route: 048
  9. TOPROL XL [Concomitant]
     Active Substance: METOPROLOL SUCCINATE
     Indication: Product used for unknown indication
     Route: 048
     Dates: start: 20220217
  10. PRILOSEC [Concomitant]
     Active Substance: OMEPRAZOLE MAGNESIUM
     Indication: Product used for unknown indication
     Dosage: DELAYED RELEASE CAPSULE, IF NEEDED
     Route: 048

REACTIONS (9)
  - Pancreatitis acute [Unknown]
  - Lipase increased [Unknown]
  - Ammonia increased [Recovering/Resolving]
  - Contracted bladder [Unknown]
  - Cholelithiasis [Unknown]
  - Gallbladder oedema [Unknown]
  - Frequent bowel movements [Recovering/Resolving]
  - Oedema peripheral [Unknown]
  - Anaemia [Unknown]
